FAERS Safety Report 13026712 (Version 1)
Quarter: 2016Q4

REPORT INFORMATION
  Report Type: Spontaneous
  Country: BR (occurrence: BR)
  Receive Date: 20161214
  Receipt Date: 20161214
  Transmission Date: 20170207
  Serious: Yes (Hospitalization, Other)
  Sender: FDA-Public Use
  Company Number: BR-GLAXOSMITHKLINE-A0806037A

PATIENT
  Sex: Female
  Weight: 100 kg

DRUGS (5)
  1. ASPIRIN. [Concomitant]
     Active Substance: ASPIRIN
     Indication: PLATELET AGGREGATION INHIBITION
     Dates: start: 200907
  2. IRON POLYMALTOSE [Concomitant]
     Active Substance: IRON POLYMALTOSE
     Indication: VITAMIN SUPPLEMENTATION
     Dates: start: 200907
  3. SINGULAIR [Concomitant]
     Active Substance: MONTELUKAST SODIUM
     Indication: DYSPNOEA
     Dosage: 1 DF, QD (TABLET NIGHT)
     Dates: start: 200907
  4. LEVAQUIN [Concomitant]
     Active Substance: LEVOFLOXACIN
     Indication: ASTHMA
     Dosage: 1 DF, QD (TABLET)
     Dates: start: 200907
  5. SERETIDE [Suspect]
     Active Substance: FLUTICASONE PROPIONATE\SALMETEROL XINAFOATE
     Indication: ASTHMA
     Dosage: 2 PUFF(S), QD (TABLET)
     Dates: start: 200907, end: 200910

REACTIONS (7)
  - Malaise [Unknown]
  - Exposure during pregnancy [Unknown]
  - Off label use [Unknown]
  - Live birth [Unknown]
  - Asthmatic crisis [Not Recovered/Not Resolved]
  - Pneumonia [Recovered/Resolved]
  - Inappropriate schedule of drug administration [Unknown]
